FAERS Safety Report 7829202-9 (Version None)
Quarter: 2011Q4

REPORT INFORMATION
  Report Type: 
  Country: None (occurrence: None)
  Receive Date: 20111020
  Receipt Date: 20111014
  Transmission Date: 20120403
  Serious: Yes (Other)
  Sender: FDA-Public Use
  Company Number: PHHY2011CA43593

PATIENT
  Sex: Female

DRUGS (1)
  1. ZOLEDRONOC ACID [Suspect]
     Indication: OSTEOPOROSIS
     Dosage: 5 MG
     Route: 042
     Dates: start: 20100514

REACTIONS (6)
  - GAIT DISTURBANCE [None]
  - RENAL PAIN [None]
  - OSTEOPOROTIC FRACTURE [None]
  - URINE COLOUR ABNORMAL [None]
  - URINARY TRACT INFECTION [None]
  - BACK PAIN [None]
